FAERS Safety Report 23852487 (Version 2)
Quarter: 2024Q2

REPORT INFORMATION
  Report Type: Spontaneous
  Country: US (occurrence: US)
  Receive Date: 20240514
  Receipt Date: 20240521
  Transmission Date: 20240716
  Serious: No
  Sender: FDA-Public Use
  Company Number: US-MYLANLABS-2024M1041650

PATIENT
  Sex: Female
  Weight: 73.93 kg

DRUGS (4)
  1. TYRVAYA [Suspect]
     Active Substance: VARENICLINE TARTRATE
     Indication: Dry eye
     Dosage: 0.03 MILLIGRAM, BID (1 SPRAY EACH NOSTRIL, TWICE DAILY)
     Route: 045
     Dates: start: 20240426
  2. VEVYE [Concomitant]
     Active Substance: CYCLOSPORINE
     Dosage: 1 GTT DROPS, BID (OPHTHALMIC SOLUTION INTO BOTH EYES STARTED LESS THAN A YEAR)
     Route: 047
  3. FLAREX [Concomitant]
     Active Substance: FLUOROMETHOLONE ACETATE
     Dosage: 1 GTT DROPS, BID (OPHTHALMIC SUSPENSION INTO BOTH EYES STARTED LESS THAN A YEAR)
     Route: 047
  4. XDEMVY [Concomitant]
     Active Substance: LOTILANER
     Dosage: 1 GTT DROPS, BID (OPHTHALMIC SOLUTION INTO BOTH EYES STARTED LESS THAN A YEAR)
     Route: 047

REACTIONS (3)
  - Nasal discomfort [Unknown]
  - Throat irritation [Unknown]
  - Sneezing [Unknown]

NARRATIVE: CASE EVENT DATE: 20240101
